FAERS Safety Report 24785287 (Version 2)
Quarter: 2025Q1

REPORT INFORMATION
  Report Type: Spontaneous
  Country: GB (occurrence: GB)
  Receive Date: 20241228
  Receipt Date: 20250121
  Transmission Date: 20250409
  Serious: Yes (Disabling, Other)
  Sender: ACCORD
  Company Number: GB-Accord-461519

PATIENT
  Age: 6 Decade
  Sex: Female

DRUGS (3)
  1. CLOZAPINE [Suspect]
     Active Substance: CLOZAPINE
     Indication: Schizophrenia
     Dosage: 50 MG OM
     Route: 048
  2. MIRTAZAPINE [Concomitant]
     Active Substance: MIRTAZAPINE
     Indication: Schizophrenia
  3. CLOZAPINE [Suspect]
     Active Substance: CLOZAPINE
     Indication: Schizophrenia
     Dosage: 500 MG NOCTE
     Route: 048

REACTIONS (16)
  - Hypophagia [Unknown]
  - Mobility decreased [Unknown]
  - Cognitive disorder [Unknown]
  - Fatigue [Recovered/Resolved]
  - Constipation [Recovering/Resolving]
  - Salivary hypersecretion [Recovered/Resolved]
  - Unresponsive to stimuli [Unknown]
  - Skin lesion [Recovered/Resolved]
  - Pyrexia [Recovered/Resolved]
  - Restlessness [Unknown]
  - Hypotension [Unknown]
  - Tachycardia [Unknown]
  - Dysphagia [Unknown]
  - Toxicity to various agents [Unknown]
  - Neutrophil count decreased [Unknown]
  - Somnolence [Recovered/Resolved]
